FAERS Safety Report 8030082-X (Version None)
Quarter: 2012Q1

REPORT INFORMATION
  Report Type: 
  Country: None (occurrence: None)
  Receive Date: 20120105
  Receipt Date: 20111220
  Transmission Date: 20120608
  Serious: Yes (Hospitalization, Other)
  Sender: FDA-Public Use
  Company Number: CIP11001337

PATIENT
  Age: 64 Year
  Sex: Female

DRUGS (10)
  1. EUFLEXXA (HYALURONATE SODIUM) [Concomitant]
  2. MEDROXYPROGESTERONE ACETATE [Concomitant]
  3. CIMETIDINE [Concomitant]
  4. ACTONEL [Suspect]
     Indication: OSTEOPENIA
     Dosage: 150 MG ORAL
     Route: 048
     Dates: start: 20090426, end: 20100601
  5. PROMETHAZINE HCL AND CODEINE PHOSPHATE [Concomitant]
  6. FOSAMAX [Suspect]
     Indication: OSTEOPOROSIS PROPHYLAXIS
     Dosage: 75 MG, ORAL
     Route: 048
     Dates: start: 20020121
  7. LIPITOR [Concomitant]
  8. ALENDRONATE SODIUM [Suspect]
     Indication: OSTEOPENIA
     Dosage: 70 MG, ORAL
     Route: 048
     Dates: start: 20080212
  9. ACTONEL [Suspect]
     Indication: OSTEOPENIA
     Dosage: 75 MG, ORAL
     Route: 048
     Dates: start: 20080420, end: 20090426
  10. KENALOG [Concomitant]

REACTIONS (25)
  - DENTAL CARIES [None]
  - DEVICE BREAKAGE [None]
  - FACE OEDEMA [None]
  - GINGIVAL SWELLING [None]
  - GINGIVAL BLISTER [None]
  - SALIVARY GLAND MASS [None]
  - MASTICATION DISORDER [None]
  - STAPHYLOCOCCAL INFECTION [None]
  - OSTEOMYELITIS [None]
  - LEUKOCYTOSIS [None]
  - KLEBSIELLA INFECTION [None]
  - TOOTHACHE [None]
  - PURULENCE [None]
  - CELLULITIS [None]
  - EXPOSED BONE IN JAW [None]
  - ALPHA HAEMOLYTIC STREPTOCOCCAL INFECTION [None]
  - TOOTH ABSCESS [None]
  - DENTAL FISTULA [None]
  - HYPOAESTHESIA ORAL [None]
  - OSTEONECROSIS OF JAW [None]
  - PAIN IN JAW [None]
  - SWELLING [None]
  - PYREXIA [None]
  - DIARRHOEA [None]
  - TOOTH EXTRACTION [None]
